FAERS Safety Report 8521376 (Version 3)
Quarter: 2012Q4

REPORT INFORMATION
  Report Type: 
  Country: JP (occurrence: JP)
  Receive Date: 20120419
  Receipt Date: 20120912
  Transmission Date: 20130627
  Serious: Yes (Hospitalization)
  Sender: FDA-Public Use
  Company Number: JP-BAYER-2012-036632

PATIENT
  Age: 39 Year
  Sex: Female
  Weight: 54 kg

DRUGS (3)
  1. BETAFERON [Suspect]
     Indication: MULTIPLE SCLEROSIS
     Dosage: 8 miu, QOD
     Route: 058
     Dates: start: 200104, end: 20120329
  2. RIVOTRIL [Concomitant]
     Indication: MUSCLE RIGIDITY
     Dosage: Daily dose .5 mg
     Route: 048
     Dates: start: 200303
  3. TRYPTANOL [Concomitant]
     Indication: HYPOAESTHESIA
     Dosage: Daily dose 20 mg
     Route: 048
     Dates: start: 200303

REACTIONS (5)
  - Fasciitis [Recovered/Resolved with Sequelae]
  - Panniculitis [Recovered/Resolved with Sequelae]
  - Erythema [Recovered/Resolved with Sequelae]
  - Oedema peripheral [Recovered/Resolved with Sequelae]
  - Pain in extremity [Recovered/Resolved with Sequelae]
